FAERS Safety Report 9465583 (Version 1)
Quarter: 2013Q3

REPORT INFORMATION
  Report Type: Spontaneous
  Country: BR (occurrence: BR)
  Receive Date: 20130820
  Receipt Date: 20130820
  Transmission Date: 20140515
  Serious: Yes (Other)
  Sender: FDA-Public Use
  Company Number: BR-JNJFOC-20130803877

PATIENT
  Age: 55 Year
  Sex: Female
  Weight: 62 kg

DRUGS (2)
  1. TYLEX [Suspect]
     Indication: MUSCULOSKELETAL PAIN
     Route: 065
     Dates: start: 20130804, end: 20130804
  2. OMEPRAZOLE [Concomitant]
     Indication: PRODUCT USED FOR UNKNOWN INDICATION
     Route: 065

REACTIONS (9)
  - Hallucination [Unknown]
  - Panic disorder [Unknown]
  - Vertigo [Unknown]
  - Bedridden [Unknown]
  - Tremor [Unknown]
  - Abdominal pain upper [Unknown]
  - Tongue movement disturbance [Unknown]
  - Nausea [Unknown]
  - Vomiting [Unknown]
